FAERS Safety Report 5751110-8 (Version None)
Quarter: 2008Q2

REPORT INFORMATION
  Report Type: 
  Country: None (occurrence: None)
  Receive Date: 20080528
  Receipt Date: 20080515
  Transmission Date: 20081010
  Serious: Yes (Hospitalization)
  Sender: FDA-Public Use
  Company Number: US-ELI_LILLY_AND_COMPANY-US200802006698

PATIENT
  Age: 70 Year
  Sex: Female

DRUGS (15)
  1. FORTEO [Suspect]
     Indication: OSTEOPOROSIS
     Dosage: 20 UG, DAILY (1/D)
     Dates: start: 20070509
  2. CORTICOSTEROID NOS [Concomitant]
     Indication: TEMPORAL ARTERITIS
  3. NAPROSYN [Concomitant]
  4. VICODIN [Concomitant]
  5. XOPENEX [Concomitant]
  6. REQUIP [Concomitant]
  7. XANAX [Concomitant]
  8. LASIX [Concomitant]
  9. LYRICA [Concomitant]
  10. ROBAXIN [Concomitant]
  11. CARAFATE [Concomitant]
  12. CALCIUM WITH VITAMIN D [Concomitant]
  13. PROTONIX [Concomitant]
  14. FENTANYL-100 [Concomitant]
  15. PREDNISONE TAB [Concomitant]

REACTIONS (4)
  - CHRONIC OBSTRUCTIVE PULMONARY DISEASE [None]
  - INJECTION SITE PAIN [None]
  - PNEUMONIA [None]
  - SINUSITIS [None]
